FAERS Safety Report 5587588-2 (Version None)
Quarter: 2008Q1

REPORT INFORMATION
  Report Type: 
  Country: None (occurrence: None)
  Receive Date: 20080110
  Receipt Date: 20080108
  Transmission Date: 20080703
  Serious: Yes (Other)
  Sender: FDA-Public Use
  Company Number: GB-MERCK-0801GBR00026

PATIENT
  Age: 65 Year
  Sex: Male

DRUGS (4)
  1. TIMOPTIC [Suspect]
     Indication: OCULAR HYPERTENSION
     Route: 061
  2. AZOPT [Suspect]
     Indication: OCULAR HYPERTENSION
     Route: 061
  3. TRAVATAN [Suspect]
     Indication: OCULAR HYPERTENSION
     Route: 061
  4. XALATAN [Suspect]
     Indication: OCULAR HYPERTENSION
     Route: 061

REACTIONS (6)
  - ABDOMINAL PAIN [None]
  - DYSPEPSIA [None]
  - MYALGIA [None]
  - NOCTURIA [None]
  - PAIN IN EXTREMITY [None]
  - SLEEP DISORDER [None]
